FAERS Safety Report 4783094-3 (Version None)
Quarter: 2005Q3

REPORT INFORMATION
  Report Type: 
  Country: None (occurrence: None)
  Receive Date: 20050929
  Receipt Date: 20050922
  Transmission Date: 20060218
  Serious: Yes (Hospitalization)
  Sender: FDA-Public Use
  Company Number: 200518524GDDC

PATIENT
  Age: 67 Year
  Sex: Male

DRUGS (3)
  1. TRIAMCINOLONE [Suspect]
     Indication: DIABETIC RETINAL OEDEMA
     Route: 031
  2. ATORVASTATIN [Concomitant]
     Indication: DYSLIPIDAEMIA
  3. WARFARIN SODIUM [Concomitant]
     Indication: AORTIC VALVE REPLACEMENT

REACTIONS (3)
  - CONJUNCTIVAL HAEMORRHAGE [None]
  - CONJUNCTIVAL ULCER [None]
  - HAEMATOMA [None]
